FAERS Safety Report 20003861 (Version 1)
Quarter: 2021Q4

REPORT INFORMATION
  Report Type: Spontaneous
  Country: AU (occurrence: AU)
  Receive Date: 20211027
  Receipt Date: 20211027
  Transmission Date: 20220304
  Serious: Yes (Hospitalization, Other)
  Sender: FDA-Public Use
  Company Number: AU-SA-SAC20211021001287

PATIENT

DRUGS (1)
  1. LIBTAYO [Suspect]
     Active Substance: CEMIPLIMAB-RWLC
     Indication: Squamous cell carcinoma of skin
     Dosage: 350 MG, Q3W
     Route: 042
     Dates: start: 20211007

REACTIONS (8)
  - Lymphocytosis [Recovering/Resolving]
  - Encephalitis [Unknown]
  - Meningitis aseptic [Unknown]
  - Pyrexia [Recovered/Resolved]
  - Headache [Recovering/Resolving]
  - Somnolence [Recovering/Resolving]
  - Rash erythematous [Recovering/Resolving]
  - Photophobia [Recovering/Resolving]

NARRATIVE: CASE EVENT DATE: 20211013
